FAERS Safety Report 5529567-7 (Version None)
Quarter: 2007Q4

REPORT INFORMATION
  Report Type: 
  Country: None (occurrence: None)
  Receive Date: 20071129
  Receipt Date: 20071119
  Transmission Date: 20080405
  Serious: Yes (Death)
  Sender: FDA-Public Use
  Company Number: RU-GENENTECH-214990

PATIENT
  Sex: Male
  Weight: 172 kg

DRUGS (3)
  1. BEVACIZUMAB [Suspect]
     Indication: COLORECTAL CANCER METASTATIC
     Dosage: 638 MG, Q3W
     Route: 042
     Dates: start: 20050310, end: 20050421
  2. FLUOROURACIL [Suspect]
     Indication: COLORECTAL CANCER METASTATIC
     Dosage: 750 MG, UNK
     Route: 042
     Dates: start: 20050310, end: 20050426
  3. FOLINIC ACID [Suspect]
     Indication: COLORECTAL CANCER METASTATIC
     Dosage: 90 MG, UNK
     Dates: start: 20050310, end: 20050426

REACTIONS (3)
  - ISCHAEMIC STROKE [None]
  - SUDDEN DEATH [None]
  - THROMBOSIS [None]
